FAERS Safety Report 18452838 (Version 1)
Quarter: 2020Q4

REPORT INFORMATION
  Report Type: Spontaneous
  Country: JP (occurrence: JP)
  Receive Date: 20201102
  Receipt Date: 20201102
  Transmission Date: 20210114
  Serious: Yes (Hospitalization, Other)
  Sender: FDA-Public Use
  Company Number: JP-TEVA-2020-JP-006586J

PATIENT
  Age: 81 Year
  Sex: Male

DRUGS (5)
  1. ACTOS [Suspect]
     Active Substance: PIOGLITAZONE HYDROCHLORIDE
     Dosage: 15 MILLIGRAM DAILY;
     Route: 048
     Dates: end: 20201022
  2. ACTOS [Suspect]
     Active Substance: PIOGLITAZONE HYDROCHLORIDE
     Indication: TYPE 2 DIABETES MELLITUS
     Dosage: 30 MILLIGRAM DAILY;
     Route: 048
  3. LIPITOR [Concomitant]
     Active Substance: ATORVASTATIN CALCIUM
     Dosage: 1 DOSAGE FORMS DAILY; ONCE DAILY
     Route: 048
  4. BAYASPIRIN [Concomitant]
     Active Substance: ASPIRIN
     Dosage: 1 DOSAGE FORMS DAILY; ONCE DAILY
     Route: 048
  5. TENELIA [Concomitant]
     Active Substance: TENELIGLIPTIN
     Dosage: 20 MILLIGRAM DAILY; ONCE DAILY
     Route: 048

REACTIONS (3)
  - Bladder cancer [Recovering/Resolving]
  - Nephrolithiasis [Recovered/Resolved]
  - Physical deconditioning [Recovered/Resolved]

NARRATIVE: CASE EVENT DATE: 201906
